FAERS Safety Report 16246777 (Version 3)
Quarter: 2019Q4

REPORT INFORMATION
  Report Type: Spontaneous
  Country: CL (occurrence: CL)
  Receive Date: 20190427
  Receipt Date: 20191211
  Transmission Date: 20200122
  Serious: Yes (Other)
  Sender: FDA-Public Use
  Company Number: CL-ROCHE-2220831

PATIENT
  Age: 40 Year
  Sex: Female

DRUGS (2)
  1. NAB-PACLITAXEL [Concomitant]
     Active Substance: PACLITAXEL
     Indication: TRIPLE NEGATIVE BREAST CANCER
     Route: 065
     Dates: start: 20181119
  2. TECENTRIQ [Suspect]
     Active Substance: ATEZOLIZUMAB
     Indication: TRIPLE NEGATIVE BREAST CANCER
     Route: 065
     Dates: start: 20181119, end: 20190909

REACTIONS (6)
  - Intentional product use issue [Unknown]
  - Cerebral disorder [Unknown]
  - Bone marrow failure [Unknown]
  - Fatigue [Unknown]
  - Aspergillus infection [Unknown]
  - Off label use [Unknown]
